FAERS Safety Report 4917822-0 (Version None)
Quarter: 2006Q1

REPORT INFORMATION
  Report Type: 
  Country: None (occurrence: None)
  Receive Date: 20060113
  Receipt Date: 20051018
  Transmission Date: 20060701
  Serious: No
  Sender: FDA-Public Use
  Company Number: 2005SP003568

PATIENT
  Age: 48 Year
  Sex: Female
  Weight: 50.8029 kg

DRUGS (5)
  1. LUNESTA [Suspect]
     Indication: INSOMNIA
     Dosage: 3 MG; HS; ORAL; SEE IMAGE
     Route: 048
     Dates: start: 20051010, end: 20051010
  2. LUNESTA [Suspect]
     Indication: INSOMNIA
     Dosage: 3 MG; HS; ORAL; SEE IMAGE
     Route: 048
     Dates: start: 20051014, end: 20051016
  3. SYNTHROID [Concomitant]
  4. M.V.I. [Concomitant]
  5. CLONOPIN [Concomitant]

REACTIONS (3)
  - DYSGEUSIA [None]
  - GLOSSITIS [None]
  - INSOMNIA [None]
